FAERS Safety Report 24124723 (Version 1)
Quarter: 2024Q3

REPORT INFORMATION
  Report Type: Spontaneous
  Country: JP (occurrence: JP)
  Receive Date: 20240723
  Receipt Date: 20240723
  Transmission Date: 20241016
  Serious: Yes (Other)
  Sender: Haleon PLC
  Company Number: JP-HALEON-2178823

PATIENT
  Age: 7 Decade
  Sex: Male

DRUGS (2)
  1. ORLISTAT [Suspect]
     Active Substance: ORLISTAT
     Indication: Product used for unknown indication
     Dosage: TIME INTERVAL: 0.33333333 DAYS: 6 DAYS
     Route: 048
  2. ORLISTAT [Suspect]
     Active Substance: ORLISTAT
     Dosage: TIME INTERVAL: AS NECESSARY: A LITTLE OVER A MONTH (1 PACKAGE OF 6-DAY SUPPLY AND 1 BOTTLE OF 30-...
     Route: 048

REACTIONS (4)
  - Haemorrhage [Recovered/Resolved]
  - Back pain [Recovered/Resolved]
  - Steatorrhoea [Unknown]
  - Ureterolithiasis [Recovered/Resolved]

NARRATIVE: CASE EVENT DATE: 20240523
